FAERS Safety Report 14527488 (Version 2)
Quarter: 2018Q1

REPORT INFORMATION
  Report Type: Report from Study
  Country: None (occurrence: ES)
  Receive Date: 20180213
  Receipt Date: 20180327
  Transmission Date: 20180509
  Serious: Yes (Other)
  Sender: FDA-Public Use
  Company Number: ES-BAUSCH-BL-2018-003562

PATIENT
  Age: 80 Year
  Sex: Male

DRUGS (25)
  1. DEXAMETHASONE. [Suspect]
     Active Substance: DEXAMETHASONE
     Dosage: WEEKLY
     Route: 065
     Dates: start: 20171010
  2. DEXAMETHASONE. [Suspect]
     Active Substance: DEXAMETHASONE
     Dosage: WEEKLY
     Route: 065
     Dates: start: 20171024
  3. LIDOCAINE. [Concomitant]
     Active Substance: LIDOCAINE
     Indication: NEURALGIA
     Route: 061
  4. FUROSEMIDE. [Concomitant]
     Active Substance: FUROSEMIDE
     Indication: HYPERTENSION
     Route: 065
  5. DEXAMETHASONE. [Suspect]
     Active Substance: DEXAMETHASONE
     Dosage: WEEKLY
     Route: 065
     Dates: start: 20171128
  6. POMALIDOMIDE [Suspect]
     Active Substance: POMALIDOMIDE
     Indication: PLASMA CELL MYELOMA
     Dosage: 3 MILLIGRAM, 21 DAYS, 63 MILLIGRAM
     Route: 048
     Dates: start: 20171003, end: 20171023
  7. POMALIDOMIDE [Suspect]
     Active Substance: POMALIDOMIDE
     Dosage: 3 MILLIGRAM, 21 DAYS, 63 MILLIGRAM
     Route: 048
     Dates: start: 20171118, end: 20171126
  8. ESOMEPRAZOLE [Concomitant]
     Active Substance: ESOMEPRAZOLE
     Indication: GASTRIC ULCER
     Route: 065
  9. GABAPENTIN. [Concomitant]
     Active Substance: GABAPENTIN
     Indication: PAIN PROPHYLAXIS
     Route: 065
  10. LEVOFLOXACIN. [Concomitant]
     Active Substance: LEVOFLOXACIN
     Indication: COUGH
     Route: 065
  11. CYCLOPHOSPHAMIDE. [Concomitant]
     Active Substance: CYCLOPHOSPHAMIDE
     Indication: PLASMA CELL MYELOMA
     Dosage: 50 MILLIGRAM, 21 DAYS, 1050 MILLIGRAM
     Route: 065
     Dates: start: 20170903
  12. METOCLOPRAMIDE. [Concomitant]
     Active Substance: METOCLOPRAMIDE
     Indication: GASTROENTERITIS
     Route: 065
  13. FOLIC ACID. [Concomitant]
     Active Substance: FOLIC ACID
     Indication: PROPHYLAXIS
     Route: 065
  14. DEXAMETHASONE. [Suspect]
     Active Substance: DEXAMETHASONE
     Dosage: WEEKLY
     Route: 065
     Dates: start: 20171114
  15. TRIMETHOPRIM/SULFAMETHOXAZOLE [Concomitant]
     Active Substance: SULFAMETHOXAZOLE\TRIMETHOPRIM
     Indication: ANTIBIOTIC PROPHYLAXIS
     Dosage: 160 TO 800 MG
     Route: 065
  16. PENTOSAN POLYSULFATE [Concomitant]
     Active Substance: PENTOSAN POLYSULFATE
     Indication: PAIN IN EXTREMITY
     Route: 061
  17. DEXAMETHASONE. [Suspect]
     Active Substance: DEXAMETHASONE
     Indication: PLASMA CELL MYELOMA
     Dosage: WEEKLY
     Route: 065
     Dates: start: 20171003
  18. DEXAMETHASONE. [Suspect]
     Active Substance: DEXAMETHASONE
     Dosage: WEEKLY
     Route: 065
     Dates: start: 20171121
  19. PARACETAMOL [Concomitant]
     Active Substance: ACETAMINOPHEN
     Indication: ARTHRALGIA
     Route: 065
  20. TINZAPARIN [Concomitant]
     Active Substance: TINZAPARIN
     Indication: PROPHYLAXIS
     Route: 065
  21. DEXAMETHASONE. [Suspect]
     Active Substance: DEXAMETHASONE
     Dosage: WEEKLY
     Route: 065
     Dates: start: 20171107
  22. AUGMENTIN [Concomitant]
     Active Substance: AMOXICILLIN\CLAVULANATE POTASSIUM
     Indication: GASTROENTERITIS
     Route: 065
  23. DEXAMETHASONE. [Suspect]
     Active Substance: DEXAMETHASONE
     Dosage: WEEKLY
     Route: 065
     Dates: start: 20171017
  24. POMALIDOMIDE [Suspect]
     Active Substance: POMALIDOMIDE
     Dosage: 3 MILLIGRAM, 21 DAYS, 63 MILLIGRAM
     Route: 048
     Dates: start: 20171106, end: 20171117
  25. ESOMEPRAZOLE [Concomitant]
     Active Substance: ESOMEPRAZOLE
     Indication: GASTRITIS PROPHYLAXIS

REACTIONS (1)
  - Neutropenia [Recovered/Resolved]

NARRATIVE: CASE EVENT DATE: 20171215
